FAERS Safety Report 11743941 (Version 1)
Quarter: 2015Q4

REPORT INFORMATION
  Report Type: Report from Study
  Country: ES (occurrence: ES)
  Receive Date: 20151116
  Receipt Date: 20151116
  Transmission Date: 20160304
  Serious: Yes (Death)
  Sender: FDA-Public Use
  Company Number: ES-PFIZER INC-2015386504

PATIENT

DRUGS (4)
  1. ETOPOSIDE. [Suspect]
     Active Substance: ETOPOSIDE
     Indication: PLASMA CELL MYELOMA
     Dosage: 40 MG/M2, CYCLIC (DAILY, 4-DAY CONTINUOUS INFUSION, EVERY 4 WEEKS)
  2. CYCLOPHOSPHAMIDE. [Suspect]
     Active Substance: CYCLOPHOSPHAMIDE
     Indication: PLASMA CELL MYELOMA
     Dosage: 400 MG/M2, CYCLIC (DAILY, 4-DAY CONTINUOUS INFUSION, EVERY 4 WEEKS)
  3. CISPLATIN. [Suspect]
     Active Substance: CISPLATIN
     Indication: PLASMA CELL MYELOMA
     Dosage: 10 MG/M2, CYCLIC (DAILY, 4-DAY CONTINUOUS INFUSION, EVERY 4 WEEKS)
  4. DOXORUBICIN HCL [Suspect]
     Active Substance: DOXORUBICIN HYDROCHLORIDE
     Indication: PLASMA CELL MYELOMA
     Dosage: 10 MG/M2, CYCLIC (DAILY, 4-DAY CONTINUOUS INFUSION, EVERY 4 WEEKS)

REACTIONS (1)
  - Death [Fatal]
